FAERS Safety Report 25026205 (Version 1)
Quarter: 2025Q1

REPORT INFORMATION
  Report Type: Spontaneous
  Country: IN (occurrence: IN)
  Receive Date: 20250301
  Receipt Date: 20250301
  Transmission Date: 20250408
  Serious: Yes (Hospitalization)
  Sender: ASPIRO PHARMA
  Company Number: IN-AMAROX PHARMA-HET2025IN00841

PATIENT
  Age: 20 Year
  Sex: Male

DRUGS (1)
  1. VORICONAZOLE [Suspect]
     Active Substance: VORICONAZOLE
     Indication: Bronchopulmonary aspergillosis
     Route: 042

REACTIONS (1)
  - Psychotic disorder [Recovered/Resolved]
